FAERS Safety Report 8484782-8 (Version None)
Quarter: 2012Q3

REPORT INFORMATION
  Report Type: 
  Country: None (occurrence: None)
  Receive Date: 20120703
  Receipt Date: 20120622
  Transmission Date: 20120928
  Serious: Yes (Other)
  Sender: FDA-Public Use
  Company Number: US-JNJFOC-20120611891

PATIENT
  Sex: Male
  Weight: 65.77 kg

DRUGS (5)
  1. SIMPONI [Suspect]
     Indication: ANKYLOSING SPONDYLITIS
     Route: 058
     Dates: start: 20110101
  2. HYOMAX [Concomitant]
     Indication: COLITIS ULCERATIVE
     Route: 048
     Dates: start: 20100101
  3. LIALDA [Concomitant]
     Indication: COLITIS ULCERATIVE
     Route: 048
     Dates: start: 20070101
  4. OMEPRAZOLE [Concomitant]
     Indication: GASTROOESOPHAGEAL REFLUX DISEASE
     Route: 048
     Dates: start: 20110101
  5. BUDESONIDE [Concomitant]
     Indication: COLITIS ULCERATIVE
     Route: 048
     Dates: start: 20100101

REACTIONS (4)
  - COLITIS ULCERATIVE [None]
  - VITAMIN D DEFICIENCY [None]
  - INSOMNIA [None]
  - PARAESTHESIA [None]
